FAERS Safety Report 8341065 (Version 5)
Quarter: 2012Q4

REPORT INFORMATION
  Report Type: 
  Country: US (occurrence: US)
  Receive Date: 20120118
  Receipt Date: 20121220
  Transmission Date: 20130627
  Serious: Yes (Other)
  Sender: FDA-Public Use
  Company Number: US-PFIZER INC-2011313844

PATIENT
  Age: 56 Year
  Sex: Female
  Weight: 59.9 kg

DRUGS (13)
  1. CHANTIX [Suspect]
     Indication: SMOKING CESSATION THERAPY
     Dosage: 0.5 mg, 1x/day
     Route: 048
     Dates: start: 201112, end: 201112
  2. CHANTIX [Suspect]
     Dosage: UNK
     Dates: start: 201112, end: 201112
  3. CHANTIX [Suspect]
     Dosage: UNK
     Dates: start: 201201
  4. CHANTIX [Suspect]
     Dosage: 0.5 mg, 1x/day
     Route: 048
     Dates: start: 201202, end: 2012
  5. CHANTIX [Suspect]
     Dosage: 0.5 mg, 2x/day
     Route: 048
     Dates: start: 2012, end: 2012
  6. CHANTIX [Suspect]
     Dosage: 1 mg, 2x/day
     Route: 048
     Dates: start: 2012, end: 201203
  7. CHANTIX [Suspect]
     Dosage: 0.5 mg, 2x/day
     Route: 048
     Dates: start: 201203, end: 201203
  8. LISINOPRIL [Concomitant]
     Indication: BLOOD PRESSURE ABNORMAL
     Dosage: 2 mg, daily
  9. ALBUTEROL [Concomitant]
     Indication: BREATHING DIFFICULT
     Dosage: UNK
  10. ALBUTEROL [Concomitant]
     Indication: CHRONIC OBSTRUCTIVE PULMONARY DISEASE
  11. ATROVENT [Concomitant]
     Indication: BREATHING DIFFICULT
     Dosage: UNK
  12. LASIX [Concomitant]
     Indication: CONGESTIVE HEART FAILURE
     Dosage: 40 mg, 2x/day
     Route: 048
  13. METHADONE [Concomitant]
     Indication: DRUG ABUSE
     Dosage: 95 mg, daily
     Dates: start: 1997

REACTIONS (11)
  - Depression [Unknown]
  - Fear [Unknown]
  - Memory impairment [Unknown]
  - Abdominal discomfort [Recovered/Resolved]
  - Nausea [Recovered/Resolved]
  - Malaise [Unknown]
  - Fatigue [Unknown]
  - Somnolence [Unknown]
  - Sneezing [Unknown]
  - Drug effect decreased [Unknown]
  - Nausea [Unknown]
